FAERS Safety Report 11138600 (Version 4)
Quarter: 2015Q2

REPORT INFORMATION
  Report Type: Spontaneous
  Country: US (occurrence: US)
  Receive Date: 20150527
  Receipt Date: 20150609
  Transmission Date: 20150821
  Serious: Yes (Other)
  Sender: FDA-Public Use
  Company Number: US-AMGEN-USASP2015050379

PATIENT
  Age: 38 Year
  Sex: Male

DRUGS (1)
  1. ENBREL [Suspect]
     Active Substance: ETANERCEPT
     Indication: PSORIATIC ARTHROPATHY
     Dosage: 50 MG, QWK
     Route: 058

REACTIONS (10)
  - Injection site reaction [Unknown]
  - Injection site pruritus [Recovered/Resolved]
  - Catheterisation cardiac [Unknown]
  - Inflammation [Unknown]
  - Injection site urticaria [Recovered/Resolved]
  - Skin discolouration [Unknown]
  - Dry eye [Unknown]
  - Headache [Recovered/Resolved]
  - Injection site pain [Unknown]
  - Infection [Recovered/Resolved]
